FAERS Safety Report 17408270 (Version 2)
Quarter: 2021Q3

REPORT INFORMATION
  Report Type: Spontaneous
  Country: US (occurrence: US)
  Receive Date: 20200212
  Receipt Date: 20210806
  Transmission Date: 20211014
  Serious: No
  Sender: FDA-Public Use
  Company Number: US-PURDUE-USA-2020-0149579

PATIENT
  Age: 53 Year
  Weight: 50 kg

DRUGS (16)
  1. BUTRANS [Suspect]
     Active Substance: BUPRENORPHINE
     Dosage: 10 MG/HR, WEEKLY
     Route: 062
     Dates: start: 20180418
  2. PERCOCET                           /00446701/ [Concomitant]
     Active Substance: ACETAMINOPHEN\OXYCODONE HYDROCHLORIDE\OXYCODONE TEREPHTHALATE
     Indication: PAIN
     Dosage: 10/325, MG
     Route: 048
  3. SYNTHROID [Concomitant]
     Active Substance: LEVOTHYROXINE SODIUM
     Indication: PRODUCT USED FOR UNKNOWN INDICATION
     Dosage: 1 TABLET, EVERY MORNING ON EMPTY STOMACH
     Route: 048
  4. OXYCODONE HYDROCHLORIDE (SIMILAR TO NDA 22?272) [Suspect]
     Active Substance: OXYCODONE HYDROCHLORIDE
     Indication: PAIN
     Dosage: 10 MG, Q6? 8H
     Route: 048
  5. LEFLUNOMIDE. [Concomitant]
     Active Substance: LEFLUNOMIDE
     Indication: PRODUCT USED FOR UNKNOWN INDICATION
     Dosage: 10 MG, QD PRN
     Route: 048
  6. NUCYNTA [Concomitant]
     Active Substance: TAPENTADOL HYDROCHLORIDE
     Indication: PRODUCT USED FOR UNKNOWN INDICATION
     Dosage: 50 MG, BID
     Route: 048
  7. MELOXICAM. [Concomitant]
     Active Substance: MELOXICAM
     Indication: PRODUCT USED FOR UNKNOWN INDICATION
     Dosage: 7.5 MG, UNK
     Route: 048
  8. METHYLPREDNISOLONE. [Concomitant]
     Active Substance: METHYLPREDNISOLONE
     Indication: PRODUCT USED FOR UNKNOWN INDICATION
     Dosage: 4 MG, UNK
     Route: 048
  9. VITAMINE D DCI [Concomitant]
     Indication: PRODUCT USED FOR UNKNOWN INDICATION
     Route: 065
  10. BUTRANS [Suspect]
     Active Substance: BUPRENORPHINE
     Indication: PAIN
     Dosage: 10 MCG/HR, WEEKLY
     Route: 062
     Dates: start: 20180215
  11. LYRICA [Concomitant]
     Active Substance: PREGABALIN
     Indication: PAIN
     Dosage: 50 MG, TID
     Route: 048
  12. TRIAMCINOLONE ACETONIDE. [Concomitant]
     Active Substance: TRIAMCINOLONE ACETONIDE
     Indication: PRODUCT USED FOR UNKNOWN INDICATION
     Route: 061
  13. LYRICA [Concomitant]
     Active Substance: PREGABALIN
     Dosage: 75 UNK, UNK
     Route: 048
  14. PREDNISONE. [Concomitant]
     Active Substance: PREDNISONE
     Indication: PRODUCT USED FOR UNKNOWN INDICATION
     Dosage: 5 MG, QD PRN
     Route: 048
  15. TRAMADOL. [Concomitant]
     Active Substance: TRAMADOL
     Indication: PRODUCT USED FOR UNKNOWN INDICATION
     Dosage: 50 MG, Q6H
     Route: 048
  16. MOBIC [Concomitant]
     Active Substance: MELOXICAM
     Indication: PRODUCT USED FOR UNKNOWN INDICATION
     Dosage: 7.5 MG, BID
     Route: 048

REACTIONS (16)
  - Application site rash [Unknown]
  - Application site pruritus [Unknown]
  - Application site scar [Not Recovered/Not Resolved]
  - Application site burn [Unknown]
  - Drug tolerance decreased [Unknown]
  - Anxiety [Unknown]
  - Drug ineffective [Unknown]
  - Emotional distress [Unknown]
  - Application site pain [Unknown]
  - Inadequate analgesia [Unknown]
  - Dermatitis contact [Unknown]
  - Pain [Unknown]
  - Injury [Unknown]
  - Application site wound [Unknown]
  - Product adhesion issue [Unknown]
  - Application site discolouration [Unknown]

NARRATIVE: CASE EVENT DATE: 20180419
